FAERS Safety Report 14664198 (Version 2)
Quarter: 2019Q2

REPORT INFORMATION
  Report Type: Spontaneous
  Country: US (occurrence: US)
  Receive Date: 20180321
  Receipt Date: 20190404
  Transmission Date: 20190711
  Serious: Yes (Hospitalization, Other)
  Sender: FDA-Public Use
  Company Number: CO-GLAXOSMITHKLINE-CO2018GSK046355

PATIENT
  Age: 17 Year
  Sex: Male

DRUGS (3)
  1. ASPIRIN. [Suspect]
     Active Substance: ASPIRIN
     Indication: PRODUCT USED FOR UNKNOWN INDICATION
     Dosage: UNK
  2. LITHIUM. [Concomitant]
     Active Substance: LITHIUM
     Indication: PRODUCT USED FOR UNKNOWN INDICATION
     Dosage: 300 MG, BID
  3. LAMOTRIGINE. [Suspect]
     Active Substance: LAMOTRIGINE
     Indication: PRODUCT USED FOR UNKNOWN INDICATION

REACTIONS (10)
  - Social avoidant behaviour [Recovering/Resolving]
  - Abnormal behaviour [Recovering/Resolving]
  - Psychomotor retardation [Recovering/Resolving]
  - Suicide attempt [Unknown]
  - Thought blocking [Recovering/Resolving]
  - Overdose [Recovering/Resolving]
  - Memory impairment [Recovering/Resolving]
  - Depression [Recovering/Resolving]
  - Indifference [Recovering/Resolving]
  - Cognitive disorder [Recovering/Resolving]
